FAERS Safety Report 10539045 (Version 2)
Quarter: 2015Q1

REPORT INFORMATION
  Report Type: Report from Study
  Country: DE (occurrence: CO)
  Receive Date: 20141023
  Receipt Date: 20150319
  Transmission Date: 20150720
  Serious: Yes (Other)
  Sender: FDA-Public Use
  Company Number: DE-ACTELION-A-US2014-107109

PATIENT
  Age: 79 Year
  Sex: Male

DRUGS (3)
  1. BOSENTAN [Concomitant]
     Active Substance: BOSENTAN\BOSENTAN MONOHYDRATE
     Dosage: UNK
  2. VENTAVIS [Suspect]
     Active Substance: ILOPROST
     Indication: PULMONARY HYPERTENSION
     Dosage: 10 MCG, Q4HR (6 NEBULIZATIONS DAY)
     Route: 055
     Dates: start: 20140819, end: 20140921
  3. VENTAVIS [Suspect]
     Active Substance: ILOPROST
     Dosage: 5 NEBULIZATIONS A DAY
     Route: 055

REACTIONS (6)
  - Off label use [Unknown]
  - Decreased appetite [Unknown]
  - Cough [Not Recovered/Not Resolved]
  - Decreased appetite [Not Recovered/Not Resolved]
  - Haematochezia [Not Recovered/Not Resolved]
  - Dyspnoea [Not Recovered/Not Resolved]

NARRATIVE: CASE EVENT DATE: 20140910
